FAERS Safety Report 22187073 (Version 1)
Quarter: 2023Q2

REPORT INFORMATION
  Report Type: Spontaneous
  Country: FR (occurrence: FR)
  Receive Date: 20230407
  Receipt Date: 20230407
  Transmission Date: 20230721
  Serious: Yes (Other)
  Sender: FDA-Public Use
  Company Number: FR-JNJFOC-20230379057

PATIENT
  Sex: Male

DRUGS (1)
  1. TECVAYLI [Suspect]
     Active Substance: TECLISTAMAB-CQYV
     Indication: Product used for unknown indication
     Dosage: THE PATIENT WAS TREATED WITH TECLISTAMAB FOR A MONTH.
     Route: 065

REACTIONS (2)
  - Staphylococcal sepsis [Unknown]
  - Cytomegalovirus infection reactivation [Unknown]
